FAERS Safety Report 6100174-0 (Version None)
Quarter: 2009Q1

REPORT INFORMATION
  Report Type: 
  Country: None (occurrence: None)
  Receive Date: 20090226
  Receipt Date: 20090212
  Transmission Date: 20090719
  Serious: Yes (Other)
  Sender: FDA-Public Use
  Company Number: MPS1-1000184

PATIENT
  Age: 19 Month
  Weight: 11 kg

DRUGS (6)
  1. ALDURAZYME [Suspect]
     Indication: MUCOPOLYSACCHARIDOSIS I
     Dosage: 5.8 MG,
     Dates: start: 20050418
  2. FUROSEMIDE [Concomitant]
  3. SPIRONOLACTONE [Concomitant]
  4. ENALAPRIL MALEATE [Concomitant]
  5. HYDROXYZINE HCL [Concomitant]
  6. ACETAMINOPHEN [Concomitant]

REACTIONS (2)
  - ERYTHEMA [None]
  - RASH [None]
